FAERS Safety Report 11516200 (Version 3)
Quarter: 2015Q4

REPORT INFORMATION
  Report Type: Other
  Country: BR (occurrence: BR)
  Receive Date: 20150917
  Receipt Date: 20151006
  Transmission Date: 20160304
  Serious: Yes (Other)
  Sender: FDA-Public Use
  Company Number: BR-DEXPHARM-20151575

PATIENT
  Age: 47 Year
  Sex: Female

DRUGS (2)
  1. DIPYRONE [Suspect]
     Active Substance: DIPYRONE
  2. DICLOFENAC [Suspect]
     Active Substance: DICLOFENAC

REACTIONS (1)
  - Necrolytic migratory erythema [Recovered/Resolved]
